FAERS Safety Report 8360503-4 (Version None)
Quarter: 2012Q1

REPORT INFORMATION
  Report Type: 
  Country: None (occurrence: None)
  Receive Date: 20120315
  Receipt Date: 20110411
  Transmission Date: 20120608
  Serious: Yes (Other)
  Sender: FDA-Public Use
  Company Number: PHHY2011US01991

PATIENT
  Age: 41 Year
  Sex: Female

DRUGS (6)
  1. CARBATROL [Concomitant]
  2. GILENYA [Suspect]
     Indication: MULTIPLE SCLEROSIS
     Dosage: 0.5 MG, QD, ORAL
     Route: 048
     Dates: start: 20110105
  3. LACTULOSE [Concomitant]
  4. CIALIS [Concomitant]
  5. CLONAZEPAM [Concomitant]
  6. BACLOFEN [Concomitant]

REACTIONS (2)
  - DIZZINESS [None]
  - VISION BLURRED [None]
